FAERS Safety Report 19469738 (Version 2)
Quarter: 2021Q3

REPORT INFORMATION
  Report Type: Report from Study
  Country: US (occurrence: US)
  Receive Date: 20210628
  Receipt Date: 20210705
  Transmission Date: 20211014
  Serious: Yes (Death, Hospitalization, Other)
  Sender: FDA-Public Use
  Company Number: US-TAKEDA-2021TUS038887

PATIENT
  Age: 63 Year
  Sex: Male
  Weight: 109.3 kg

DRUGS (23)
  1. AMANTADINE. [Concomitant]
     Active Substance: AMANTADINE HYDROCHLORIDE
  2. BISOPROLOL /HCTZ [Concomitant]
     Active Substance: BISOPROLOL FUMARATE\HYDROCHLOROTHIAZIDE
  3. ACETAMINOPHEN. [Concomitant]
     Active Substance: ACETAMINOPHEN
  4. KEPPRA [Concomitant]
     Active Substance: LEVETIRACETAM
  5. EPINEPHRINE. [Concomitant]
     Active Substance: EPINEPHRINE
  6. MACULAR [Concomitant]
  7. LIPITOR [Concomitant]
     Active Substance: ATORVASTATIN CALCIUM
  8. LASIX [Concomitant]
     Active Substance: FUROSEMIDE
  9. VITAMIN D3 [Concomitant]
     Active Substance: CHOLECALCIFEROL
  10. THERATEARS [Concomitant]
     Active Substance: CARBOXYMETHYLCELLULOSE SODIUM
  11. SINGULAIR [Concomitant]
     Active Substance: MONTELUKAST SODIUM
  12. DILANTIN [Concomitant]
     Active Substance: PHENYTOIN
  13. LOSARTAN AND HYDROCHLOROTHIAZIDE [Concomitant]
     Active Substance: HYDROCHLOROTHIAZIDE\LOSARTAN POTASSIUM
  14. PREDNISONE. [Concomitant]
     Active Substance: PREDNISONE
  15. NEURONTIN [Concomitant]
     Active Substance: GABAPENTIN
  16. VENTOLIN [Concomitant]
     Active Substance: ALBUTEROL SULFATE
  17. DIPHENHYDRAMINE. [Concomitant]
     Active Substance: DIPHENHYDRAMINE
  18. LIDOCAINE/PRILOCAINE [Concomitant]
     Active Substance: LIDOCAINE\PRILOCAINE
  19. TOPAMAX [Concomitant]
     Active Substance: TOPIRAMATE
  20. HUMAN NORMAL IMMUNOGLOBULIN; LIQUID [Suspect]
     Active Substance: HUMAN IMMUNOGLOBULIN G
     Indication: IMMUNODEFICIENCY COMMON VARIABLE
     Dosage: 10 GRAM, 1/WEEK
     Route: 058
     Dates: start: 20140225
  21. DIAZEPAM. [Concomitant]
     Active Substance: DIAZEPAM
  22. EFFEXOR [Concomitant]
     Active Substance: VENLAFAXINE HYDROCHLORIDE
  23. ASPIRIN. [Concomitant]
     Active Substance: ASPIRIN

REACTIONS (7)
  - Respiratory failure [Fatal]
  - Pneumonia [Unknown]
  - Atrial fibrillation [Unknown]
  - Septic shock [Unknown]
  - Renal failure [Unknown]
  - Respiratory distress [Unknown]
  - Sepsis [Unknown]

NARRATIVE: CASE EVENT DATE: 20210623
